FAERS Safety Report 11849101 (Version 1)
Quarter: 2015Q4

REPORT INFORMATION
  Report Type: Spontaneous
  Country: US (occurrence: None)
  Receive Date: 20151217
  Receipt Date: 20151217
  Transmission Date: 20160305
  Serious: Yes (Hospitalization)
  Sender: FDA-Public Use
  Company Number: None

PATIENT
  Age: 86 Year
  Sex: Male
  Weight: 111.4 kg

DRUGS (1)
  1. CHLORTHALIDONE. [Suspect]
     Active Substance: CHLORTHALIDONE
     Indication: HYPERTENSION
     Dosage: MG PO
     Route: 048
     Dates: end: 20150714

REACTIONS (4)
  - Dizziness postural [None]
  - Hypotension [None]
  - Bradycardia [None]
  - Asthenia [None]

NARRATIVE: CASE EVENT DATE: 20141208
